FAERS Safety Report 6945479-6 (Version None)
Quarter: 2010Q3

REPORT INFORMATION
  Report Type: 
  Country: None (occurrence: None)
  Receive Date: 20100827
  Receipt Date: 20100811
  Transmission Date: 20110219
  Serious: No
  Sender: FDA-Public Use
  Company Number: US-PFIZER INC-2010101737

PATIENT
  Sex: Male

DRUGS (1)
  1. FLUCONAZOLE [Suspect]
     Indication: ORAL CANDIDIASIS
     Dosage: 40MG/ML SUSPENSION 3 CC FOR FIRST DAY AND THEN 125 CC FOR FOURTEEN DAYS
     Dates: start: 20100719

REACTIONS (1)
  - DRUG INEFFECTIVE [None]
